FAERS Safety Report 17884564 (Version 1)
Quarter: 2020Q2

REPORT INFORMATION
  Report Type: Spontaneous
  Country: US (occurrence: US)
  Receive Date: 20200611
  Receipt Date: 20200611
  Transmission Date: 20200714
  Serious: Yes (Other)
  Sender: FDA-Public Use
  Company Number: US-MYLANLABS-2020M1054844

PATIENT
  Sex: Female

DRUGS (1)
  1. ADENOSINE. [Suspect]
     Active Substance: ADENOSINE
     Indication: VENTRICULAR TACHYCARDIA
     Dosage: TWO DOSES
     Route: 065

REACTIONS (1)
  - Drug ineffective [Unknown]
